FAERS Safety Report 8516513-7 (Version None)
Quarter: 2012Q3

REPORT INFORMATION
  Report Type: 
  Country: None (occurrence: None)
  Receive Date: 20120711
  Receipt Date: 20120711
  Transmission Date: 20120928
  Serious: Yes (Other)
  Sender: FDA-Public Use
  Company Number: None

PATIENT
  Sex: Female

DRUGS (1)
  1. PEGASYS [Suspect]
     Indication: HEPATITIS C
     Dosage: 180 MCG WEEKLY SQ
     Route: 058
     Dates: start: 20120418, end: 20120502

REACTIONS (5)
  - HEADACHE [None]
  - VOMITING [None]
  - NAUSEA [None]
  - THROAT TIGHTNESS [None]
  - MALAISE [None]
